FAERS Safety Report 4598834-6 (Version None)
Quarter: 2005Q1

REPORT INFORMATION
  Report Type: 
  Country: None (occurrence: None)
  Receive Date: 20050304
  Receipt Date: 20050203
  Transmission Date: 20050727
  Serious: Yes (Other)
  Sender: FDA-Public Use
  Company Number: US-JNJFOC-20041103808

PATIENT
  Sex: Male
  Weight: 68.95 kg

DRUGS (2)
  1. REMICADE [Suspect]
     Route: 042
  2. REMICADE [Suspect]
     Indication: CROHN'S DISEASE
     Route: 042

REACTIONS (8)
  - CONDYLOMA ACUMINATUM [None]
  - DERMATITIS [None]
  - FOOD ALLERGY [None]
  - GASTROENTERITIS EOSINOPHILIC [None]
  - HYPEREOSINOPHILIC SYNDROME [None]
  - MELANOCYTIC NAEVUS [None]
  - OCCUPATIONAL EXPOSURE TO TOXIC AGENT [None]
  - VASCULITIS [None]
